FAERS Safety Report 6555139-1 (Version None)
Quarter: 2010Q1

REPORT INFORMATION
  Report Type: 
  Country: None (occurrence: None)
  Receive Date: 20100126
  Receipt Date: 20100126
  Transmission Date: 20100710
  Serious: Yes (Life-Threatening, Hospitalization)
  Sender: FDA-Public Use
  Company Number: None

PATIENT
  Sex: Male
  Weight: 86.1834 kg

DRUGS (2)
  1. CLOZAPINE [Suspect]
     Indication: ANTISOCIAL PERSONALITY DISORDER
     Dosage: CLOZARIL 200MG PO DAILY; CLOZARIL 300MG PO DAILY
     Route: 048
  2. CLOZAPINE [Suspect]
     Indication: IMPULSE-CONTROL DISORDER
     Dosage: CLOZARIL 200MG PO DAILY; CLOZARIL 300MG PO DAILY
     Route: 048

REACTIONS (2)
  - CARDIAC TAMPONADE [None]
  - PERICARDIAL EFFUSION [None]
